FAERS Safety Report 7559071-6 (Version None)
Quarter: 2011Q2

REPORT INFORMATION
  Report Type: 
  Country: None (occurrence: None)
  Receive Date: 20110621
  Receipt Date: 20110606
  Transmission Date: 20111010
  Serious: Yes (Hospitalization, Other)
  Sender: FDA-Public Use
  Company Number: FR-JNJFOC-20071201468

PATIENT
  Age: 55 Year
  Sex: Male
  Weight: 64 kg

DRUGS (9)
  1. REMICADE [Suspect]
     Indication: CROHN'S DISEASE
     Route: 042
  2. AZATHIOPRINE SODIUM [Suspect]
     Dates: start: 20050101, end: 20070101
  3. REMICADE [Suspect]
     Route: 042
     Dates: start: 20050901
  4. VENOFER [Concomitant]
     Dates: start: 20070713, end: 20070713
  5. AZATHIOPRINE SODIUM [Suspect]
     Indication: CROHN'S DISEASE
     Dates: start: 19940101, end: 20030901
  6. REMICADE [Suspect]
     Dosage: TOTAL 4 INFUSIONS
     Route: 042
     Dates: start: 20060118
  7. REMICADE [Suspect]
     Route: 042
     Dates: start: 20051104
  8. VENOFER [Concomitant]
     Indication: ANAEMIA
     Dates: start: 20070926, end: 20070926
  9. VENOFER [Concomitant]
     Dates: start: 20070920, end: 20070920

REACTIONS (2)
  - ANAEMIA [None]
  - NON-HODGKIN'S LYMPHOMA [None]
